FAERS Safety Report 20630957 (Version 7)
Quarter: 2022Q3

REPORT INFORMATION
  Report Type: Spontaneous
  Country: CA (occurrence: CA)
  Receive Date: 20220324
  Receipt Date: 20220915
  Transmission Date: 20221027
  Serious: Yes (Other)
  Sender: FDA-Public Use
  Company Number: CA-CELLTRION INC.-2022CA002776

PATIENT

DRUGS (16)
  1. INFLECTRA [Suspect]
     Active Substance: INFLIXIMAB-DYYB
     Indication: Crohn^s disease
     Dosage: 5 MG/KG; AT WEEK 0, 2 AND 6 THEN EVERY 4 WEEKS
     Route: 042
  2. INFLECTRA [Suspect]
     Active Substance: INFLIXIMAB-DYYB
     Dosage: 5 MG/KG; AT WEEK 0, 2 AND 6 THEN EVERY 4 WEEKS
     Route: 042
     Dates: start: 20220225, end: 20220408
  3. INFLECTRA [Suspect]
     Active Substance: INFLIXIMAB-DYYB
     Dosage: 5 MG/KG, AT WEEK 0, 2 AND 6
     Route: 042
     Dates: start: 20220225, end: 20220408
  4. INFLECTRA [Suspect]
     Active Substance: INFLIXIMAB-DYYB
     Dosage: 5 MG/KG; AT WEEK 0, 2 AND 6 THEN EVERY 4 WEEKS
     Route: 042
     Dates: start: 20220311, end: 20220311
  5. INFLECTRA [Suspect]
     Active Substance: INFLIXIMAB-DYYB
     Dosage: 5 MG/KG; AT WEEK 0, 2 AND 6 THEN EVERY 4 WEEKS
     Route: 042
     Dates: start: 20220408, end: 20220408
  6. INFLECTRA [Suspect]
     Active Substance: INFLIXIMAB-DYYB
     Dosage: 5 MG/KG, EVERY 4 WEEKS, 500 MG FIXED DOSE
     Route: 042
     Dates: start: 20220503, end: 20220503
  7. INFLECTRA [Suspect]
     Active Substance: INFLIXIMAB-DYYB
     Dosage: 5 MG/KG, EVERY 4 WEEKS, 500 MG FIXED DOSE
     Route: 042
     Dates: start: 20220602, end: 20220602
  8. INFLECTRA [Suspect]
     Active Substance: INFLIXIMAB-DYYB
     Dosage: 5 MG/KG, EVERY 4 WEEKS (500 MG FIXED DOSE)
     Route: 042
     Dates: start: 20220705
  9. INFLECTRA [Suspect]
     Active Substance: INFLIXIMAB-DYYB
     Dosage: 5 MG/KG, EVERY 4 WEEKS (500 MG FIXED DOSE)
     Route: 042
     Dates: start: 20220805
  10. INFLECTRA [Suspect]
     Active Substance: INFLIXIMAB-DYYB
     Dosage: 5 MG/KG, EVERY 4 WEEKS (500 MG FIXED DOSE)
     Route: 042
     Dates: start: 20220902
  11. DEXEDRINE [Concomitant]
     Active Substance: DEXTROAMPHETAMINE SULFATE
     Dosage: 1 DF, (DOSE/FREQUENCY NOT AVAILABLE)
     Route: 065
  12. FOLIC ACID [Concomitant]
     Active Substance: FOLIC ACID
     Dosage: 1 DF (DOSE/FREQUENCY NOT AVAILABLE)
     Route: 065
  13. METHOTREXATE [Concomitant]
     Active Substance: METHOTREXATE
     Dosage: 1 DF (DOSE/FREQUENCY NOT AVAILABLE)
     Route: 065
     Dates: start: 20220225
  14. PREDNISONE [Concomitant]
     Active Substance: PREDNISONE
     Dosage: 15 MG (FREQUENCY NOT AVAILABLE)
     Route: 065
  15. VANCOMYCIN [Concomitant]
     Active Substance: VANCOMYCIN
     Dosage: 1 DF (DOSE/FREQUENCY NOT AVAILABLE)
     Route: 065
  16. VITAMIN D3 [Concomitant]
     Active Substance: CHOLECALCIFEROL
     Dosage: 3000 IU, (FREQUENCY NOT AVAILABLE)
     Route: 065

REACTIONS (7)
  - Anal abscess [Not Recovered/Not Resolved]
  - Off label use [Unknown]
  - Condition aggravated [Recovering/Resolving]
  - Anal fissure [Unknown]
  - Anal fistula [Not Recovered/Not Resolved]
  - Fistula [Unknown]
  - Abscess [Unknown]

NARRATIVE: CASE EVENT DATE: 20220311
